FAERS Safety Report 7454753-9 (Version None)
Quarter: 2011Q2

REPORT INFORMATION
  Report Type: 
  Country: None (occurrence: None)
  Receive Date: 20110503
  Receipt Date: 20100707
  Transmission Date: 20111010
  Serious: No
  Sender: FDA-Public Use
  Company Number: US-PFIZER INC-2010044867

PATIENT
  Sex: Female
  Weight: 57 kg

DRUGS (1)
  1. DEPO-PROVERA [Suspect]
     Indication: CONTRACEPTION
     Dosage: 150 MG, UNK
     Route: 030

REACTIONS (7)
  - INJECTION SITE VESICLES [None]
  - PELVIC PAIN [None]
  - INJECTION SITE ERYTHEMA [None]
  - INJECTION SITE MOVEMENT IMPAIRMENT [None]
  - INJECTION SITE MASS [None]
  - INJECTION SITE PAIN [None]
  - INJECTION SITE HAEMORRHAGE [None]
